FAERS Safety Report 13684734 (Version 1)
Quarter: 2017Q2

REPORT INFORMATION
  Report Type: Spontaneous
  Country: US (occurrence: US)
  Receive Date: 20170623
  Receipt Date: 20170623
  Transmission Date: 20170830
  Serious: No
  Sender: FDA-Public Use
  Company Number: US-ASTELLAS-2017US019135

PATIENT
  Sex: Male

DRUGS (1)
  1. VESICARE [Suspect]
     Active Substance: SOLIFENACIN SUCCINATE
     Indication: URINARY INCONTINENCE
     Dosage: 1 TABLET, ONCE DAILY
     Route: 065

REACTIONS (3)
  - Drug ineffective [Unknown]
  - Urine odour abnormal [Recovering/Resolving]
  - Skin odour abnormal [Recovering/Resolving]
